FAERS Safety Report 5187886-0 (Version None)
Quarter: 2006Q4

REPORT INFORMATION
  Report Type: 
  Country: None (occurrence: None)
  Receive Date: 20061221
  Receipt Date: 20061214
  Transmission Date: 20070319
  Serious: Yes (Other)
  Sender: FDA-Public Use
  Company Number: 2006AP06043

PATIENT
  Age: 52 Year
  Sex: Male

DRUGS (5)
  1. MARCAINE [Suspect]
     Indication: SPINAL ANAESTHESIA
     Route: 037
  2. PANSPORIN [Concomitant]
     Dates: end: 20060812
  3. LOXONIN [Concomitant]
     Route: 048
     Dates: end: 20060912
  4. MARZULENE [Concomitant]
     Route: 048
  5. ADONAMIN C [Concomitant]

REACTIONS (1)
  - SENSORY DISTURBANCE [None]
